FAERS Safety Report 4565486-0 (Version None)
Quarter: 2005Q1

REPORT INFORMATION
  Report Type: 
  Country: None (occurrence: None)
  Receive Date: 20050125
  Receipt Date: 20050125
  Transmission Date: 20050727
  Serious: Yes (Death)
  Sender: FDA-Public Use
  Company Number: None

PATIENT
  Sex: Male
  Weight: 77.1115 kg

DRUGS (7)
  1. CELEBREX [Suspect]
     Indication: ARTHRALGIA
     Dosage: 200MG  ONE/TWO   ORAL
     Route: 048
     Dates: start: 20010101, end: 20020617
  2. CELEBREX [Suspect]
     Indication: ARTHRITIS
     Dosage: 200MG  ONE/TWO   ORAL
     Route: 048
     Dates: start: 20010101, end: 20020617
  3. LIPITOR [Concomitant]
  4. ACCUPRIL [Concomitant]
  5. ATENOLOL [Concomitant]
  6. HYDROCHLOROTHIAZIDE [Concomitant]
  7. CLARITIN [Concomitant]

REACTIONS (1)
  - ACUTE MYOCARDIAL INFARCTION [None]
